FAERS Safety Report 17059833 (Version 1)
Quarter: 2019Q4

REPORT INFORMATION
  Report Type: Spontaneous
  Country: US (occurrence: US)
  Receive Date: 20191121
  Receipt Date: 20191121
  Transmission Date: 20200122
  Serious: Yes (Other)
  Sender: FDA-Public Use
  Company Number: None

PATIENT
  Age: 71 Year
  Sex: Male
  Weight: 99 kg

DRUGS (9)
  1. HYDROCHLOROTHIAZIDE. [Concomitant]
     Active Substance: HYDROCHLOROTHIAZIDE
  2. BUPRENORPHINE. [Suspect]
     Active Substance: BUPRENORPHINE
     Indication: NEURALGIA
     Dosage: ?          OTHER STRENGTH:MCG/HOUR;QUANTITY:4 BOX (4 PATCHES);OTHER FREQUENCY:1 PATCH/WEEK;?
     Route: 062
     Dates: start: 20160224
  3. LYRICA [Concomitant]
     Active Substance: PREGABALIN
  4. D3 2000IU [Concomitant]
  5. LEVOTHYROXINE. [Concomitant]
     Active Substance: LEVOTHYROXINE
  6. MULTIVITAMIN [Concomitant]
     Active Substance: VITAMINS
  7. MATANX [Concomitant]
  8. TESTOSTERONE. [Suspect]
     Active Substance: TESTOSTERONE
  9. R ALPHA LIPOIC ACID [Concomitant]

REACTIONS (5)
  - Product adhesion issue [None]
  - Pain [None]
  - Product substitution issue [None]
  - Incorrect dose administered [None]
  - Product quality issue [None]

NARRATIVE: CASE EVENT DATE: 20190904
